FAERS Safety Report 9702470 (Version 1)
Quarter: 2013Q4

REPORT INFORMATION
  Report Type: Spontaneous
  Country: US (occurrence: US)
  Receive Date: 20131121
  Receipt Date: 20131121
  Transmission Date: 20140711
  Serious: No
  Sender: FDA-Public Use
  Company Number: US-PFIZER INC-2013331724

PATIENT
  Age: 60 Year
  Sex: Female
  Weight: 77.1 kg

DRUGS (6)
  1. DESVENLAFAXINE SUCCINATE MONOHYDRATE [Suspect]
     Indication: DEPRESSION
     Dosage: 100 MG, 1X/DAY
     Dates: start: 201311, end: 20131119
  2. DESVENLAFAXINE SUCCINATE MONOHYDRATE [Suspect]
     Indication: ANXIETY
  3. METOPROLOL [Concomitant]
     Indication: HYPERTENSION
     Dosage: 25 MG, UNK
  4. NEXIUM [Concomitant]
     Dosage: UNK
  5. LIPITOR [Concomitant]
     Dosage: UNK
  6. SINGULAIR [Concomitant]
     Indication: HYPERSENSITIVITY
     Dosage: UNK

REACTIONS (4)
  - Malaise [Unknown]
  - Feeling abnormal [Unknown]
  - Drug ineffective [Unknown]
  - Off label use [Unknown]
